APPROVED DRUG PRODUCT: FLUOCINONIDE
Active Ingredient: FLUOCINONIDE
Strength: 0.1%
Dosage Form/Route: CREAM;TOPICAL
Application: A091282 | Product #001
Applicant: GLENMARK PHARMACEUTICALS LTD
Approved: Jul 14, 2014 | RLD: No | RS: No | Type: DISCN